FAERS Safety Report 10136406 (Version 1)
Quarter: 2014Q2

REPORT INFORMATION
  Report Type: Spontaneous
  Country: US (occurrence: None)
  Receive Date: 20140425
  Receipt Date: 20140425
  Transmission Date: 20141212
  Serious: Yes (Hospitalization)
  Sender: FDA-Public Use
  Company Number: UTC-047397

PATIENT
  Age: 67 Year
  Sex: Female

DRUGS (3)
  1. TYVASO [Suspect]
     Indication: COR PULMONALE CHRONIC
     Dosage: 18 TO 54 MCG (4 IN 1 D), INHALATION
     Dates: start: 20130131
  2. TRACLEER (BOSENTAN) (UNKNOWN) [Concomitant]
  3. COUMADIN (WARFARIN SODIUM) (UNKNOWN) [Concomitant]

REACTIONS (2)
  - Skin discolouration [None]
  - Cellulitis [None]
